FAERS Safety Report 11832228 (Version 1)
Quarter: 2015Q4

REPORT INFORMATION
  Report Type: Spontaneous
  Country: FR (occurrence: FR)
  Receive Date: 20151214
  Receipt Date: 20151214
  Transmission Date: 20160305
  Serious: Yes (Hospitalization)
  Sender: FDA-Public Use
  Company Number: FR-SA-2015SA205602

PATIENT
  Age: 81 Year
  Sex: Male

DRUGS (10)
  1. TAZOBACTAM/PIPERACILLIN [Suspect]
     Active Substance: PIPERACILLIN SODIUM\TAZOBACTAM SODIUM
     Dosage: 4G/500MG
     Route: 042
     Dates: start: 20150810, end: 20150906
  2. STABLON [Concomitant]
     Active Substance: TIANEPTINE
     Dates: start: 20150828
  3. CARDENSIEL [Concomitant]
     Active Substance: BISOPROLOL FUMARATE
  4. GENTAMICIN. [Concomitant]
     Active Substance: GENTAMICIN
     Dates: start: 20150810, end: 20150813
  5. INEXIUM [Concomitant]
     Active Substance: ESOMEPRAZOLE
  6. CORDARONE [Concomitant]
     Active Substance: AMIODARONE HYDROCHLORIDE
     Dates: end: 20150817
  7. VANCOMYCINE [Concomitant]
     Active Substance: VANCOMYCIN
     Dates: start: 20150829, end: 20150831
  8. AMLODIPINE [Concomitant]
     Active Substance: AMLODIPINE BESYLATE
     Dates: start: 20150822
  9. LOVENOX [Suspect]
     Active Substance: ENOXAPARIN SODIUM
     Dosage: 0.6 ML, 2 DAY
     Route: 058
     Dates: start: 20150813, end: 20150908
  10. ASPEGIC [Concomitant]
     Active Substance: ASPIRIN DL-LYSINE

REACTIONS (1)
  - Drug reaction with eosinophilia and systemic symptoms [Recovering/Resolving]

NARRATIVE: CASE EVENT DATE: 20150831
